FAERS Safety Report 4704364-0 (Version None)
Quarter: 2005Q2

REPORT INFORMATION
  Report Type: 
  Country: None (occurrence: None)
  Receive Date: 20050630
  Receipt Date: 20050531
  Transmission Date: 20051028
  Serious: Yes (Other)
  Sender: FDA-Public Use
  Company Number: GBWYE707831MAY05

PATIENT
  Sex: Female

DRUGS (7)
  1. ENBREL [Suspect]
     Indication: RHEUMATOID ARTHRITIS
     Dosage: UNKNOWN
     Route: 058
     Dates: start: 20050322, end: 20050527
  2. LANSOPRAZOLE [Concomitant]
  3. FUROSEMIDE [Concomitant]
  4. PREDNISOLONE [Concomitant]
  5. CELECOXIB [Concomitant]
  6. PROCHLORPERAZINE [Concomitant]
  7. PROPRANOLOL [Concomitant]

REACTIONS (5)
  - AUTONOMIC NERVOUS SYSTEM IMBALANCE [None]
  - FATIGUE [None]
  - FLUSHING [None]
  - HAEMOGLOBIN DECREASED [None]
  - PLATELET COUNT DECREASED [None]
